FAERS Safety Report 8176604-X (Version None)
Quarter: 2012Q1

REPORT INFORMATION
  Report Type: 
  Country: None (occurrence: None)
  Receive Date: 20120228
  Receipt Date: 20120210
  Transmission Date: 20120608
  Serious: Yes (Hospitalization, Other)
  Sender: FDA-Public Use
  Company Number: JPI-P-019520

PATIENT
  Age: 22 Year
  Sex: Male

DRUGS (8)
  1. ESZOPLICONE [Concomitant]
  2. OLANZAPINE [Concomitant]
  3. LAMOTRIGINE [Concomitant]
  4. XYREM [Suspect]
     Indication: NARCOLEPSY
     Dosage: 1.5 GM (0.75 GM,2 IN 1 D),ORAL ; ORAL ; 6 GM (3 GM,2 IN 1 D),ORAL
     Route: 048
     Dates: start: 20080321
  5. XYREM [Suspect]
     Indication: NARCOLEPSY
     Dosage: 1.5 GM (0.75 GM,2 IN 1 D),ORAL ; ORAL ; 6 GM (3 GM,2 IN 1 D),ORAL
     Route: 048
     Dates: start: 20080227
  6. BUPROPION HCL [Suspect]
     Indication: PRODUCT USED FOR UNKNOWN INDICATION
     Dates: start: 20110801, end: 20110801
  7. CLONAZEPAM [Concomitant]
  8. PREGABALIN [Concomitant]

REACTIONS (9)
  - AGGRESSION [None]
  - VOMITING [None]
  - SUICIDAL IDEATION [None]
  - MOOD ALTERED [None]
  - BLOOD PRESSURE INCREASED [None]
  - NAUSEA [None]
  - FALL [None]
  - WEIGHT DECREASED [None]
  - CONVULSION [None]
